FAERS Safety Report 12184896 (Version 1)
Quarter: 2016Q1

REPORT INFORMATION
  Report Type: Spontaneous
  Country: US (occurrence: US)
  Receive Date: 20160316
  Receipt Date: 20160316
  Transmission Date: 20160526
  Serious: Yes (Other)
  Sender: FDA-Public Use
  Company Number: US-TEVA-643824ACC

PATIENT
  Sex: Female
  Weight: 83.08 kg

DRUGS (2)
  1. PARAGARD T 380A [Suspect]
     Active Substance: COPPER
     Indication: CONTRACEPTION
     Dates: start: 20160122, end: 20160310
  2. COLACE [Concomitant]
     Active Substance: DOCUSATE SODIUM
     Indication: CONSTIPATION

REACTIONS (3)
  - Dysmenorrhoea [Recovered/Resolved]
  - Exposure during breast feeding [Unknown]
  - Device dislocation [Recovered/Resolved]
